FAERS Safety Report 7409050-4 (Version None)
Quarter: 2011Q2

REPORT INFORMATION
  Report Type: 
  Country: None (occurrence: None)
  Receive Date: 20110412
  Receipt Date: 20110408
  Transmission Date: 20111010
  Serious: Yes (Life-Threatening, Hospitalization, Other)
  Sender: FDA-Public Use
  Company Number: PHHY2011FR20778

PATIENT
  Sex: Female

DRUGS (17)
  1. NEORAL [Suspect]
     Indication: BONE MARROW TRANSPLANT
     Dosage: 150 MG, BID
     Dates: start: 20100901
  2. SANDIMMUNE [Concomitant]
     Dosage: 150 MG, BID
     Dates: start: 20100824, end: 20100901
  3. TRIFLUCAN [Concomitant]
     Dosage: 400 MG, QD
     Dates: start: 20100801
  4. AMOXICILLIN [Concomitant]
     Dates: start: 20101230
  5. AUGMENTIN [Concomitant]
     Dosage: 1 G, TID
     Dates: start: 20100801, end: 20100921
  6. NEORAL [Suspect]
     Indication: GRAFT VERSUS HOST DISEASE
     Dosage: 80 MG, BID
     Dates: end: 20101124
  7. ZELITREX [Concomitant]
     Dates: start: 20101230
  8. MAGNE B6 [Concomitant]
     Dosage: 4 DF
     Dates: start: 20100801
  9. AMOXICILLIN [Concomitant]
     Dosage: 500 G, TID
     Dates: start: 20100801, end: 20100921
  10. ENDOXAN [Concomitant]
     Dosage: 80 MG/KG
     Route: 042
     Dates: start: 20100801
  11. XANAX [Concomitant]
     Dosage: 0.25 MG, QD
     Dates: start: 20100401
  12. MOPRAL [Concomitant]
     Dates: start: 20101230
  13. METHOTREXATE [Concomitant]
     Route: 037
     Dates: start: 20100301, end: 20100801
  14. PENTACARINAT [Concomitant]
     Dosage: 1 DF
     Dates: start: 20100501
  15. MOPRAL [Concomitant]
     Dosage: 1 DF, QD
     Dates: start: 20100401, end: 20101123
  16. ZELITREX [Concomitant]
     Dosage: 500 MG, BID
     Dates: start: 20100401, end: 20101123
  17. PENTACARINAT [Concomitant]
     Dates: start: 20101230

REACTIONS (23)
  - NEUROTOXICITY [None]
  - DEPRESSED LEVEL OF CONSCIOUSNESS [None]
  - PERIPHERAL SENSORY NEUROPATHY [None]
  - ASTHENIA [None]
  - APHASIA [None]
  - SCIATICA [None]
  - LUNG DISORDER [None]
  - MYALGIA [None]
  - DECREASED APPETITE [None]
  - BALANCE DISORDER [None]
  - CYTOLYTIC HEPATITIS [None]
  - BRAIN INJURY [None]
  - VISUAL IMPAIRMENT [None]
  - CHOLESTASIS [None]
  - FEELING HOT [None]
  - ENCEPHALOPATHY [None]
  - DISORIENTATION [None]
  - HYPOAESTHESIA [None]
  - MUSCULOSKELETAL STIFFNESS [None]
  - VISION BLURRED [None]
  - CAUDA EQUINA SYNDROME [None]
  - RENAL IMPAIRMENT [None]
  - GENERAL PHYSICAL HEALTH DETERIORATION [None]
